FAERS Safety Report 4917701-9 (Version None)
Quarter: 2006Q1

REPORT INFORMATION
  Report Type: 
  Country: None (occurrence: None)
  Receive Date: 20060221
  Receipt Date: 20050923
  Transmission Date: 20060701
  Serious: Yes (Hospitalization)
  Sender: FDA-Public Use
  Company Number: JP-ROCHE-418649

PATIENT
  Age: 75 Year
  Sex: Male

DRUGS (1)
  1. PANALDINE [Suspect]
     Indication: THROMBOSIS PROPHYLAXIS
     Dosage: OTHER INDICATIONS: PERCUTANEOUS CORONARY INTERVENTION/STENT PLACEMENT.
     Route: 048
     Dates: start: 20050715, end: 20050815

REACTIONS (1)
  - HEPATIC FUNCTION ABNORMAL [None]
